FAERS Safety Report 6169007-0 (Version None)
Quarter: 2009Q2

REPORT INFORMATION
  Report Type: 
  Country: None (occurrence: None)
  Receive Date: 20090427
  Receipt Date: 20090417
  Transmission Date: 20091009
  Serious: Yes (Other)
  Sender: FDA-Public Use
  Company Number: BR-PFIZER INC-2008069450

PATIENT

DRUGS (6)
  1. CELEBRA [Suspect]
     Indication: COUGH
     Route: 048
     Dates: start: 20080801, end: 20080813
  2. CARBAMAZEPINE [Interacting]
  3. DIAZEPAM [Concomitant]
  4. HYDROCHLOROTHIAZIDE [Concomitant]
  5. ENALAPRIL [Concomitant]
  6. GENERAL NUTRIENTS/HERBAL NOS [Concomitant]

REACTIONS (10)
  - ABDOMINAL PAIN [None]
  - BONE PAIN [None]
  - CONVULSION [None]
  - DIARRHOEA [None]
  - DRUG INTERACTION [None]
  - HEADACHE [None]
  - HEPATOMEGALY [None]
  - KIDNEY ENLARGEMENT [None]
  - PANCREATIC DISORDER [None]
  - SWELLING [None]
